FAERS Safety Report 5478596-0 (Version None)
Quarter: 2007Q4

REPORT INFORMATION
  Report Type: 
  Country: None (occurrence: None)
  Receive Date: 20071005
  Receipt Date: 20071001
  Transmission Date: 20080405
  Serious: Yes (Life-Threatening, Hospitalization)
  Sender: FDA-Public Use
  Company Number: FR-ELI_LILLY_AND_COMPANY-FR200710000038

PATIENT
  Sex: Male

DRUGS (12)
  1. ALIMTA [Suspect]
     Indication: LUNG CANCER METASTATIC
     Dosage: 860 MG, OTHER
     Route: 042
     Dates: start: 20070411, end: 20070411
  2. FOLIC ACID [Concomitant]
     Route: 065
  3. XATRAL                                  /FRA/ [Concomitant]
     Route: 048
  4. SOLU-MEDROL [Concomitant]
     Route: 048
  5. NEURONTIN [Concomitant]
     Route: 048
  6. PLAVIX [Concomitant]
     Route: 048
  7. RIVOTRIL [Concomitant]
     Route: 048
  8. NOCTAMIDE [Concomitant]
     Route: 048
  9. DURAGESIC-100 [Concomitant]
     Indication: PAIN IN EXTREMITY
     Dosage: 125 UG, OTHER
     Route: 062
  10. ACTISKENAN [Concomitant]
     Indication: PAIN IN EXTREMITY
     Dosage: UNK, AS NEEDED
     Route: 048
  11. PROFENID [Concomitant]
     Indication: PAIN IN EXTREMITY
     Route: 065
  12. INEXIUM [Concomitant]
     Indication: PAIN IN EXTREMITY
     Dosage: UNK, UNK
     Route: 048
     Dates: start: 20070307

REACTIONS (5)
  - BLOOD CREATININE INCREASED [None]
  - DIARRHOEA [None]
  - FEBRILE NEUTROPENIA [None]
  - HYPOTENSION [None]
  - PANCYTOPENIA [None]
